FAERS Safety Report 6635761-4 (Version None)
Quarter: 2010Q1

REPORT INFORMATION
  Report Type: 
  Country: None (occurrence: None)
  Receive Date: 20100309
  Receipt Date: 20100223
  Transmission Date: 20100710
  Serious: Yes (Other)
  Sender: FDA-Public Use
  Company Number: 2010AL001217

PATIENT
  Sex: Female

DRUGS (1)
  1. CITALOPRAM HYDROBROMIDE [Suspect]
     Dosage: 40 MG;QD
     Dates: start: 20091201

REACTIONS (9)
  - ANXIETY [None]
  - ARTHRALGIA [None]
  - CHILLS [None]
  - EYE DISORDER [None]
  - FEELING COLD [None]
  - HYPERHIDROSIS [None]
  - NERVOUSNESS [None]
  - REFUSAL OF TREATMENT BY PATIENT [None]
  - SINUS DISORDER [None]
